FAERS Safety Report 4612531-X (Version None)
Quarter: 2005Q1

REPORT INFORMATION
  Report Type: 
  Country: None (occurrence: None)
  Receive Date: 20050318
  Receipt Date: 20050307
  Transmission Date: 20050727
  Serious: Yes (Other)
  Sender: FDA-Public Use
  Company Number: US-BRISTOL-MYERS SQUIBB COMPANY-12888707

PATIENT
  Age: 61 Year
  Sex: Female

DRUGS (4)
  1. COUMADIN [Suspect]
     Indication: THROMBOSIS PROPHYLAXIS
  2. HEPARIN [Concomitant]
     Indication: THROMBOSIS PROPHYLAXIS
  3. FLUOROURACIL [Concomitant]
     Indication: CHEMOTHERAPY
  4. LEUCOVORIN [Concomitant]
     Indication: CHEMOTHERAPY

REACTIONS (1)
  - FAT EMBOLISM [None]
